FAERS Safety Report 9017170 (Version 1)
Quarter: 2013Q1

REPORT INFORMATION
  Report Type: Spontaneous
  Country: US (occurrence: US)
  Receive Date: 20130117
  Receipt Date: 20130117
  Transmission Date: 20140127
  Serious: Yes (Hospitalization)
  Sender: FDA-Public Use
  Company Number: US-BAYER-2013-004534

PATIENT
  Age: 27 Year
  Sex: Female

DRUGS (8)
  1. YAZ [Suspect]
     Dosage: UNK
  2. MOTRIN [Concomitant]
     Dosage: 800 MG, UNK
  3. PLAN B [Concomitant]
     Dosage: UNK
  4. ADDERALL [Concomitant]
     Dosage: 10 MG, THREE TIMES A DAY
     Route: 048
  5. AUGMENTIN [Concomitant]
     Dosage: UNK
  6. CIPROFLOXACIN HCL [Concomitant]
     Dosage: 500 MG, UNK
  7. ZOLOFT [Concomitant]
     Dosage: 50 MG, DAILY
     Route: 048
  8. AMOXICILLIN TRIHYDRATE W/CLAVULANTE POTASSIUM [Concomitant]
     Dosage: UNK

REACTIONS (1)
  - Pulmonary embolism [None]
